FAERS Safety Report 8306218-X (Version None)
Quarter: 2012Q2

REPORT INFORMATION
  Report Type: 
  Country: None (occurrence: None)
  Receive Date: 20120423
  Receipt Date: 20120418
  Transmission Date: 20120825
  Serious: Yes (Hospitalization)
  Sender: FDA-Public Use
  Company Number: SE-ABBOTT-11P-150-0733687-00

PATIENT
  Sex: Female

DRUGS (3)
  1. SULFASALAZINE [Suspect]
     Indication: PRODUCT USED FOR UNKNOWN INDICATION
     Route: 048
     Dates: end: 20110401
  2. HUMIRA [Suspect]
     Indication: HAEMORRHAGE
     Dates: start: 20101214, end: 20110401
  3. REMICADE [Suspect]
     Indication: PRODUCT USED FOR UNKNOWN INDICATION
     Dates: start: 20100928, end: 20101119

REACTIONS (3)
  - ADVERSE DRUG REACTION [None]
  - ALVEOLITIS [None]
  - INTERSTITIAL LUNG DISEASE [None]
